FAERS Safety Report 17404139 (Version 3)
Quarter: 2020Q2

REPORT INFORMATION
  Report Type: Report from Study
  Country: GB (occurrence: GB)
  Receive Date: 20200211
  Receipt Date: 20200413
  Transmission Date: 20200713
  Serious: Yes (Other)
  Sender: FDA-Public Use
  Company Number: NVSC2020GB034742

PATIENT
  Sex: Female

DRUGS (1)
  1. HYRIMOZ [Suspect]
     Active Substance: ADALIMUMAB-ADAZ
     Indication: AXIAL SPONDYLOARTHRITIS
     Dosage: 40 MG, Q2W
     Route: 065
     Dates: start: 20200121

REACTIONS (12)
  - Madarosis [Unknown]
  - Night sweats [Recovering/Resolving]
  - Headache [Unknown]
  - Dizziness [Recovering/Resolving]
  - Hypertension [Recovering/Resolving]
  - Melaena [Recovering/Resolving]
  - Eye pain [Unknown]
  - Abdominal pain upper [Unknown]
  - Urine abnormality [Recovering/Resolving]
  - Arthritis [Unknown]
  - Abdominal pain [Recovering/Resolving]
  - Infection [Unknown]
